FAERS Safety Report 5464742-1 (Version None)
Quarter: 2007Q3

REPORT INFORMATION
  Report Type: 
  Country: None (occurrence: None)
  Receive Date: 20070921
  Receipt Date: 20070911
  Transmission Date: 20080115
  Serious: Yes (Hospitalization, Other)
  Sender: FDA-Public Use
  Company Number: JP-PFIZER INC-2007055783

PATIENT
  Sex: Female
  Weight: 56.7 kg

DRUGS (3)
  1. ZOLOFT [Suspect]
     Dosage: DAILY DOSE:25MG
     Route: 048
     Dates: start: 20070402, end: 20070719
  2. DEPAS [Suspect]
     Indication: INSOMNIA
     Dosage: DAILY DOSE:1MG
  3. DOGMATYL [Concomitant]

REACTIONS (14)
  - ACTIVITIES OF DAILY LIVING IMPAIRED [None]
  - ASTHENIA [None]
  - BEDRIDDEN [None]
  - CONVERSION DISORDER [None]
  - DEMENTIA [None]
  - DEPRESSION [None]
  - DIZZINESS [None]
  - DYSKINESIA [None]
  - DYSPHAGIA [None]
  - DYSURIA [None]
  - INSOMNIA [None]
  - PYREXIA [None]
  - SOMNOLENCE [None]
  - WHITE BLOOD CELL COUNT INCREASED [None]
